FAERS Safety Report 4843905-X (Version None)
Quarter: 2005Q4

REPORT INFORMATION
  Report Type: 
  Country: None (occurrence: None)
  Receive Date: 20051129
  Receipt Date: 20051121
  Transmission Date: 20060501
  Serious: Yes (Other)
  Sender: FDA-Public Use
  Company Number: 200513969GDS

PATIENT
  Age: 42 Year
  Sex: Male

DRUGS (1)
  1. ACTIMAX (MOXIFLOXACIN) [Suspect]
     Dosage: 400 MG, ORAL
     Route: 048
     Dates: start: 20051012

REACTIONS (2)
  - CYANOSIS [None]
  - LOSS OF CONSCIOUSNESS [None]
